FAERS Safety Report 5766364-1 (Version None)
Quarter: 2008Q2

REPORT INFORMATION
  Report Type: 
  Country: None (occurrence: None)
  Receive Date: 20080606
  Receipt Date: 20080526
  Transmission Date: 20081010
  Serious: Yes (Other)
  Sender: FDA-Public Use
  Company Number: 2006BI000396

PATIENT
  Age: 59 Year
  Sex: Female

DRUGS (2)
  1. AVONEX [Suspect]
     Indication: MULTIPLE SCLEROSIS
     Dosage: 30 UG; QW; IM
     Route: 030
     Dates: start: 20020101
  2. BLOOD PRESSURE MEDICATIONS (NOS) [Concomitant]

REACTIONS (3)
  - BLOOD PRESSURE INCREASED [None]
  - MULTIPLE SCLEROSIS [None]
  - THROMBOTIC STROKE [None]
